FAERS Safety Report 4696488-1 (Version None)
Quarter: 2005Q2

REPORT INFORMATION
  Report Type: 
  Country: None (occurrence: None)
  Receive Date: 20050608
  Receipt Date: 20050502
  Transmission Date: 20051028
  Serious: Yes (Life-Threatening)
  Sender: FDA-Public Use
  Company Number: A03200501316

PATIENT
  Age: 50 Year
  Sex: Female
  Weight: 79.8331 kg

DRUGS (7)
  1. ELOXATIN [Suspect]
     Indication: COLON CANCER
     Dosage: (PARTIALLY ILLEGIBLE) MG Q2W - INTRAVENOUS NOS
     Route: 042
     Dates: start: 20050414, end: 20050414
  2. FLUOROURACIL [Concomitant]
  3. LEUCOVORIN [Concomitant]
  4. CALCIUM GLCONATE [Concomitant]
  5. DEXAMETHASONE [Concomitant]
  6. MAGNESIUM SULFATE [Concomitant]
  7. DOLASETRON MESILATE [Concomitant]

REACTIONS (3)
  - ERYTHEMA [None]
  - PRURITUS [None]
  - RASH [None]
